FAERS Safety Report 8871308 (Version 2)
Quarter: 2013Q2

REPORT INFORMATION
  Report Type: Spontaneous
  Country: US (occurrence: None)
  Receive Date: 20120426
  Receipt Date: 20120703
  Transmission Date: 20140414
  Serious: Yes (Other)
  Sender: FDA-Public Use
  Company Number: PHEH2012US002245

PATIENT
  Age: 62 Year
  Sex: Female

DRUGS (9)
  1. GILENYA [Suspect]
     Indication: MULTIPLE SCLEROSIS
     Route: 048
     Dates: start: 20111010
  2. PAXIL (PAROXETINE HYDROCHLORIDE) [Concomitant]
  3. BACLOFEN (BACLOFEN) [Concomitant]
  4. NORCO (HYDROCODONE BITARTRATE, PARACETAMOL) [Concomitant]
  5. HYDROCORTISONE (HYDROCORTISONE) [Concomitant]
  6. VERAPAMIL (VERAPAMIL) [Concomitant]
  7. BONIVA (BANDRONATE SODIUM) [Concomitant]
  8. ESTRONE (ESTRONE) [Concomitant]
  9. HYDROCHLOROTHIAZIDE (HYDROCHLOROTHIAZIDE) [Concomitant]

REACTIONS (5)
  - Depression [None]
  - Influenza like illness [None]
  - Pyrexia [None]
  - Chills [None]
  - Hyperhidrosis [None]
